FAERS Safety Report 9176831 (Version 1)
Quarter: 2013Q1

REPORT INFORMATION
  Report Type: Spontaneous
  Country: CH (occurrence: CH)
  Receive Date: 20130321
  Receipt Date: 20130321
  Transmission Date: 20140127
  Serious: Yes (Death, Other)
  Sender: FDA-Public Use
  Company Number: CH-PFIZER INC-2013091214

PATIENT
  Age: 25 Year
  Sex: Male

DRUGS (3)
  1. VENLAFAXINE HYDROCHLORIDE [Suspect]
     Indication: DEPRESSION
     Dosage: 150 MG, 1X/DAY
     Route: 048
     Dates: start: 20120813, end: 20120918
  2. VENLAFAXINE HYDROCHLORIDE [Suspect]
     Dosage: 225 MG DAILY
     Route: 048
     Dates: start: 20120919
  3. TRIMIPRAMINE [Suspect]
     Indication: DEPRESSION
     Dosage: 25 MG, 1X/DAY
     Route: 048
     Dates: start: 20120920

REACTIONS (3)
  - Completed suicide [Fatal]
  - Head injury [Fatal]
  - Toxicity to various agents [Unknown]
